FAERS Safety Report 6840424-6 (Version None)
Quarter: 2010Q3

REPORT INFORMATION
  Report Type: 
  Country: None (occurrence: None)
  Receive Date: 20100714
  Receipt Date: 20100707
  Transmission Date: 20110219
  Serious: Yes (Death)
  Sender: FDA-Public Use
  Company Number: GXKR2010GB07544

PATIENT
  Age: 69 Year
  Sex: Male
  Weight: 138 kg

DRUGS (5)
  1. HALOPERIDOL (NGX) [Suspect]
     Indication: AGITATION
     Dosage: 5 MG, QID
     Route: 048
  2. LORAZEPAM [Suspect]
     Indication: AGITATION
     Dosage: 2 MG, BID
     Route: 048
     Dates: start: 20100422, end: 20100423
  3. ARIPIPRAZOLE [Suspect]
     Indication: BIPOLAR I DISORDER
     Dosage: 30 MG, QD
     Route: 048
     Dates: start: 20100422, end: 20100423
  4. ARIPIPRAZOLE [Suspect]
     Indication: PSYCHOTIC BEHAVIOUR
  5. DIAZEPAM [Concomitant]

REACTIONS (1)
  - DEATH [None]
